FAERS Safety Report 5164715-2 (Version None)
Quarter: 2006Q4

REPORT INFORMATION
  Report Type: 
  Country: None (occurrence: None)
  Receive Date: 20061127
  Receipt Date: 20061110
  Transmission Date: 20070319
  Serious: Yes (Life-Threatening)
  Sender: FDA-Public Use
  Company Number: 06-NIP00159

PATIENT
  Age: 36 Year
  Sex: Female
  Weight: 78.2 kg

DRUGS (1)
  1. NIPENT [Suspect]
     Indication: PROPHYLAXIS AGAINST GRAFT VERSUS HOST DISEASE
     Dosage: (1.5 MG/M2, X 4), INTRAVENOUS
     Route: 042
     Dates: start: 20060614, end: 20060706

REACTIONS (3)
  - PANCYTOPENIA [None]
  - STEM CELL TRANSPLANT [None]
  - TRANSPLANT REJECTION [None]
